FAERS Safety Report 19020208 (Version 2)
Quarter: 2021Q2

REPORT INFORMATION
  Report Type: Spontaneous
  Country: US (occurrence: US)
  Receive Date: 20210317
  Receipt Date: 20210617
  Transmission Date: 20210717
  Serious: Yes (Other)
  Sender: FDA-Public Use
  Company Number: US-PFIZER INC-2020371832

PATIENT
  Age: 54 Year
  Sex: Female

DRUGS (1)
  1. XELJANZ XR [Suspect]
     Active Substance: TOFACITINIB CITRATE
     Indication: RHEUMATOID ARTHRITIS
     Dosage: 11 MG, 1X/DAY
     Route: 048
     Dates: start: 2015, end: 202105

REACTIONS (6)
  - Abdominal injury [Unknown]
  - Discouragement [Unknown]
  - Depressed mood [Unknown]
  - Product dose omission issue [Unknown]
  - Diverticulitis [Unknown]
  - Hepatic enzyme increased [Unknown]
